FAERS Safety Report 25492853 (Version 2)
Quarter: 2025Q3

REPORT INFORMATION
  Report Type: Other
  Country: US (occurrence: US)
  Receive Date: 20250630
  Receipt Date: 20250917
  Transmission Date: 20251020
  Serious: No
  Sender: TRAVERE THERAPEUTICS
  Company Number: US-TRAVERE-2025TVT00779

PATIENT
  Age: 69 Year
  Sex: Male

DRUGS (1)
  1. FILSPARI [Suspect]
     Active Substance: SPARSENTAN
     Indication: IgA nephropathy
     Route: 048
     Dates: start: 20250401, end: 202504

REACTIONS (3)
  - Heart rate increased [Recovering/Resolving]
  - Fatigue [Unknown]
  - Dyspnoea [Unknown]
